FAERS Safety Report 25262859 (Version 3)
Quarter: 2025Q3

REPORT INFORMATION
  Report Type: Report from Study
  Country: US (occurrence: US)
  Receive Date: 20250502
  Receipt Date: 20250710
  Transmission Date: 20251020
  Serious: Yes (Other)
  Sender: NOVARTIS
  Company Number: US-002147023-NVSC2025US070984

PATIENT
  Sex: Female

DRUGS (1)
  1. LEQVIO [Suspect]
     Active Substance: INCLISIRAN SODIUM
     Indication: Product used for unknown indication
     Route: 058

REACTIONS (13)
  - Cardiac dysfunction [Unknown]
  - Pain [Unknown]
  - Dizziness [Unknown]
  - Feeling abnormal [Unknown]
  - Hepatic enzyme increased [Unknown]
  - Pruritus [Unknown]
  - Fungal infection [Unknown]
  - Sleep disorder [Unknown]
  - Dyspnoea [Unknown]
  - Gait inability [Unknown]
  - Dysstasia [Unknown]
  - Illness [Recovering/Resolving]
  - Temperature intolerance [Unknown]
